FAERS Safety Report 24383463 (Version 1)
Quarter: 2024Q3

REPORT INFORMATION
  Report Type: Spontaneous
  Country: US (occurrence: None)
  Receive Date: 20240930
  Receipt Date: 20240930
  Transmission Date: 20241016
  Serious: Yes (Hospitalization)
  Sender: Public
  Company Number: None

PATIENT
  Sex: Female
  Weight: 67.59 kg

DRUGS (4)
  1. WINREVAIR [Suspect]
     Active Substance: SOTATERCEPT-CSRK
     Indication: Pulmonary arterial hypertension
     Dosage: OTHER FREQUENCY : EVERY3WEEKS;?
     Route: 058
     Dates: start: 202406
  2. SILDENAFIL CITRATE [Concomitant]
  3. VELETRI SDV [Concomitant]
  4. OPSUMIT [Concomitant]

REACTIONS (1)
  - Complication associated with device [None]
